FAERS Safety Report 7730429-5 (Version None)
Quarter: 2011Q3

REPORT INFORMATION
  Report Type: 
  Country: None (occurrence: None)
  Receive Date: 20110901
  Receipt Date: 20110901
  Transmission Date: 20111222
  Serious: Yes (Other)
  Sender: FDA-Public Use
  Company Number: None

PATIENT
  Age: 25 Year
  Sex: Female
  Weight: 63.5036 kg

DRUGS (1)
  1. BRETHINE [Suspect]
     Indication: PREMATURE LABOUR
     Dosage: VARIES EVERY 6 HRS. SQ+PO
     Route: 048
     Dates: start: 20020720, end: 20020818

REACTIONS (2)
  - TREMOR [None]
  - MATERNAL EXPOSURE DURING PREGNANCY [None]
